FAERS Safety Report 8508882-9 (Version None)
Quarter: 2012Q3

REPORT INFORMATION
  Report Type: 
  Country: None (occurrence: None)
  Receive Date: 20120713
  Receipt Date: 20120704
  Transmission Date: 20120928
  Serious: Yes (Death, Hospitalization)
  Sender: FDA-Public Use
  Company Number: FR-009507513-1207FRA000171

PATIENT

DRUGS (1)
  1. TEMODAL [Suspect]
     Indication: GLIOBLASTOMA
     Dosage: 140 MG, QD
     Route: 048
     Dates: start: 20120416, end: 20120516

REACTIONS (3)
  - LEUKOPENIA [None]
  - LYMPHOPENIA [None]
  - THROMBOCYTOPENIA [None]
